FAERS Safety Report 8508157 (Version 4)
Quarter: 2013Q2

REPORT INFORMATION
  Report Type: Spontaneous
  Country: US (occurrence: US)
  Receive Date: 20120412
  Receipt Date: 20130418
  Transmission Date: 20140414
  Serious: No
  Sender: FDA-Public Use
  Company Number: US-ASTRAZENECA-2011SE62725

PATIENT
  Age: 45 Year
  Sex: Male

DRUGS (2)
  1. NEXIUM [Suspect]
     Route: 048
  2. OVER THE COUNTER MEDICATION [Suspect]
     Route: 065

REACTIONS (12)
  - Arthritis [Unknown]
  - Back injury [Unknown]
  - Heart rate irregular [Unknown]
  - Gastrooesophageal reflux disease [Unknown]
  - Haemorrhage [Unknown]
  - Sleep disorder due to a general medical condition [Unknown]
  - Chest discomfort [Unknown]
  - Oesophageal pain [Unknown]
  - Feeling abnormal [Unknown]
  - Barrett^s oesophagus [Unknown]
  - Intentional drug misuse [Unknown]
  - Drug dose omission [Unknown]
